FAERS Safety Report 16050403 (Version 2)
Quarter: 2019Q1

REPORT INFORMATION
  Report Type: Report from Study
  Country: IT (occurrence: IT)
  Receive Date: 20190308
  Receipt Date: 20190312
  Transmission Date: 20190418
  Serious: Yes (Hospitalization)
  Sender: FDA-Public Use
  Company Number: IT-TEVA-2019-IT-1021462

PATIENT
  Age: 70 Year
  Sex: Male

DRUGS (8)
  1. AMOXICILLINA E ACIDO CLAVULANICO ARISTO 875 MG + 125 MG COMPRESSE RIVE [Suspect]
     Active Substance: AMOXICILLIN\CLAVULANIC ACID
     Indication: TOOTH INFECTION
     Dosage: 3 DOSAGE FORMS DAILY;
     Route: 048
  2. EZETIMIBE/SIMVASTATINA [Concomitant]
     Indication: HYPERCHOLESTEROLAEMIA
  3. LIXIANA 30 MG FILM-COATED TABLETS [Concomitant]
     Active Substance: EDOXABAN TOSYLATE
     Indication: ARRHYTHMIA PROPHYLAXIS
     Route: 048
  4. CARDIOASPIRIN 100 MG COMPRESSE GASTRORESISTENTI [Concomitant]
     Active Substance: ASPIRIN
  5. OLMESARTAN MEDOXOMIL/IDROCLOROTIAZIDE [Concomitant]
     Active Substance: HYDROCHLOROTHIAZIDE\OLMESARTAN MEDOXOMIL
     Indication: HYPERTENSION
  6. ZYLORIC 300 MG COMPRESSE [Interacting]
     Active Substance: ALLOPURINOL
     Indication: HYPERURICAEMIA
     Dosage: 300 MILLIGRAM DAILY;
     Route: 048
     Dates: start: 20190121, end: 20190211
  7. CARDICOR 1,25 MG COMPRESSE RIVESTITE CON FILM [Concomitant]
     Active Substance: BISOPROLOL FUMARATE
     Indication: MYOCARDIAL ISCHAEMIA
     Dosage: 2 DOSAGE FORMS DAILY;
     Route: 048
  8. MULTAQ 400 MG FILM-COATED TABLETS [Concomitant]
     Indication: ARRHYTHMIA
     Dosage: 2 DOSAGE FORMS DAILY;
     Route: 048

REACTIONS (5)
  - Conjunctivitis [Recovering/Resolving]
  - Mucosal inflammation [Recovering/Resolving]
  - Drug interaction [Recovering/Resolving]
  - Blister [Recovering/Resolving]
  - Erythema multiforme [Recovering/Resolving]

NARRATIVE: CASE EVENT DATE: 20190209
